FAERS Safety Report 4287096-5 (Version None)
Quarter: 2004Q1

REPORT INFORMATION
  Report Type: 
  Country: None (occurrence: None)
  Receive Date: 20040126
  Receipt Date: 20030930
  Transmission Date: 20041129
  Serious: No
  Sender: FDA-Public Use
  Company Number: USA030945948

PATIENT
  Age: 72 Year
  Sex: Female
  Weight: 59 kg

DRUGS (1)
  1. FORTEO [Suspect]
     Indication: OSTEOPOROSIS
     Dates: start: 20030826, end: 20030901

REACTIONS (5)
  - BALANCE DISORDER [None]
  - DIZZINESS [None]
  - HEART RATE INCREASED [None]
  - NIGHT SWEATS [None]
  - PALPITATIONS [None]
